FAERS Safety Report 8788760 (Version 2)
Quarter: 2012Q4

REPORT INFORMATION
  Report Type: 
  Country: US (occurrence: US)
  Receive Date: 20120916
  Receipt Date: 20121022
  Transmission Date: 20130627
  Serious: No
  Sender: FDA-Public Use
  Company Number: US-009507513-1208USA001169

PATIENT
  Sex: Male
  Weight: 65.76 kg

DRUGS (2)
  1. PEGINTRON [Suspect]
     Indication: HEPATITIS C
     Dosage: UNK
     Dates: start: 20120428
  2. RIBAVIRIN [Suspect]
     Indication: HEPATITIS C
     Dosage: UNK
     Dates: start: 20120428

REACTIONS (9)
  - Influenza [Unknown]
  - Blood glucose increased [Unknown]
  - Weight decreased [Unknown]
  - Oropharyngeal pain [Unknown]
  - Hair disorder [Unknown]
  - Chills [Unknown]
  - Malaise [Unknown]
  - Decreased appetite [Unknown]
  - Fatigue [Unknown]
